FAERS Safety Report 12530224 (Version 1)
Quarter: 2016Q3

REPORT INFORMATION
  Report Type: Spontaneous
  Country: US (occurrence: None)
  Receive Date: 20160705
  Receipt Date: 20160705
  Transmission Date: 20161109
  Serious: Yes (Hospitalization)
  Sender: FDA-Public Use
  Company Number: None

PATIENT
  Age: 51 Year
  Sex: Male

DRUGS (1)
  1. TAFINLAR [Suspect]
     Active Substance: DABRAFENIB MESYLATE

REACTIONS (6)
  - Rash [None]
  - Vomiting [None]
  - Decreased appetite [None]
  - Diarrhoea [None]
  - Headache [None]
  - Nausea [None]

NARRATIVE: CASE EVENT DATE: 20160615
